FAERS Safety Report 9677682 (Version 1)
Quarter: 2013Q4

REPORT INFORMATION
  Report Type: Spontaneous
  Country: ES (occurrence: ES)
  Receive Date: 20131108
  Receipt Date: 20131108
  Transmission Date: 20140711
  Serious: Yes (Death, Other)
  Sender: FDA-Public Use
  Company Number: ES-ASTELLAS-2013EU009659

PATIENT
  Age: 44 Year
  Sex: Male

DRUGS (2)
  1. TACROLIMUS SYSTEMIC [Suspect]
     Indication: ACUTE GRAFT VERSUS HOST DISEASE
     Dosage: UNK
     Route: 065
  2. RITUXIMAB [Suspect]
     Dosage: UNK
     Route: 065

REACTIONS (7)
  - Off label use [Unknown]
  - Sepsis [Fatal]
  - Multi-organ failure [Fatal]
  - Alpha haemolytic streptococcal infection [Fatal]
  - Chronic graft versus host disease [Unknown]
  - Encephalitis [Unknown]
  - Lymphoma cutis [Recovered/Resolved]
